FAERS Safety Report 6306173-8 (Version None)
Quarter: 2009Q3

REPORT INFORMATION
  Report Type: 
  Country: None (occurrence: None)
  Receive Date: 20090810
  Receipt Date: 20090724
  Transmission Date: 20100115
  Serious: Yes (Death, Hospitalization)
  Sender: FDA-Public Use
  Company Number: 2009AL004019

PATIENT
  Age: 64 Year
  Sex: Female

DRUGS (18)
  1. DIGOXIN [Suspect]
     Dosage: 0.25MG, DAILY, PO
     Route: 048
  2. ATENOLOL [Concomitant]
  3. ZESTRIL [Concomitant]
  4. ASPIRIN [Concomitant]
  5. ISORDIL [Concomitant]
  6. NITROGLYCERIN [Concomitant]
  7. CLINIDINE [Concomitant]
  8. VENTOLIN [Concomitant]
  9. PROZAC [Concomitant]
  10. METOPROLOL [Concomitant]
  11. CIPROFLOXACIN [Concomitant]
  12. MIRTAZAPINE [Concomitant]
  13. LISINOPRIL [Concomitant]
  14. TRAZODONE HCL [Concomitant]
  15. MINITRAN [Concomitant]
  16. HYDROCODONE [Concomitant]
  17. METHOCARBAMOL [Concomitant]
  18. ISOSORBIDE DINITRATE [Concomitant]

REACTIONS (13)
  - ALTERED STATE OF CONSCIOUSNESS [None]
  - ANGINA PECTORIS [None]
  - ANHEDONIA [None]
  - ARRHYTHMIA [None]
  - CARDIAC FAILURE CONGESTIVE [None]
  - ECONOMIC PROBLEM [None]
  - ILL-DEFINED DISORDER [None]
  - ISCHAEMIC CARDIOMYOPATHY [None]
  - MEMORY IMPAIRMENT [None]
  - MULTIPLE INJURIES [None]
  - MYOCARDIAL INFARCTION [None]
  - PAIN IN EXTREMITY [None]
  - URINARY TRACT INFECTION [None]
